FAERS Safety Report 19928932 (Version 4)
Quarter: 2021Q4

REPORT INFORMATION
  Report Type: Spontaneous
  Country: US (occurrence: US)
  Receive Date: 20211007
  Receipt Date: 20211101
  Transmission Date: 20220304
  Serious: No
  Sender: FDA-Public Use
  Company Number: US-BIOGEN-2021BI01055121

PATIENT
  Sex: Female

DRUGS (1)
  1. TECFIDERA [Suspect]
     Active Substance: DIMETHYL FUMARATE
     Indication: Multiple sclerosis
     Route: 065

REACTIONS (10)
  - Product dose omission issue [Recovered/Resolved]
  - Dysphagia [Not Recovered/Not Resolved]
  - Regurgitation [Not Recovered/Not Resolved]
  - Pain [Not Recovered/Not Resolved]
  - Central nervous system lesion [Unknown]
  - Memory impairment [Unknown]
  - Salivary hypersecretion [Unknown]
  - Drooling [Recovered/Resolved]
  - Dyspepsia [Not Recovered/Not Resolved]
  - Nausea [Recovered/Resolved]
